APPROVED DRUG PRODUCT: PMB 200
Active Ingredient: ESTROGENS, CONJUGATED; MEPROBAMATE
Strength: 0.45MG;200MG
Dosage Form/Route: TABLET;ORAL
Application: N010971 | Product #005
Applicant: WYETH AYERST LABORATORIES
Approved: Approved Prior to Jan 1, 1982 | RLD: No | RS: No | Type: DISCN